FAERS Safety Report 6306641-9 (Version None)
Quarter: 2009Q3

REPORT INFORMATION
  Report Type: 
  Country: None (occurrence: None)
  Receive Date: 20090812
  Receipt Date: 20090805
  Transmission Date: 20100115
  Serious: Yes (Other)
  Sender: FDA-Public Use
  Company Number: B0587370A

PATIENT
  Age: 79 Year
  Sex: Male

DRUGS (19)
  1. CEFUROXIME [Suspect]
     Indication: CATARACT OPERATION
     Dates: start: 20080319, end: 20090319
  2. ADRENALINE [Suspect]
     Indication: CATARACT OPERATION
     Dates: start: 20080319, end: 20090319
  3. SODIUM HYALURONATE [Suspect]
     Indication: CATARACT OPERATION
     Dates: start: 20080319, end: 20080319
  4. PHENYLEPHRINE [Suspect]
     Indication: CATARACT OPERATION
     Dates: start: 20080319, end: 20080319
  5. PHENYLEPHRINE [Concomitant]
     Indication: MYDRIASIS
     Route: 047
     Dates: start: 20080319, end: 20080319
  6. CYCLOPENTOLATE HCL [Concomitant]
     Indication: CYCLOPLEGIA
     Route: 047
     Dates: start: 20080319, end: 20080319
  7. VOLTAREN [Concomitant]
     Route: 047
     Dates: start: 20080319, end: 20080319
  8. LIGNOCAINE [Concomitant]
     Dates: start: 20080319, end: 20080319
  9. HYALASE [Concomitant]
     Dates: start: 20080319, end: 20080319
  10. POVIDONE IODINE [Concomitant]
     Route: 061
     Dates: start: 20080319, end: 20080319
  11. WATER FOR INJECTIONS [Concomitant]
     Indication: MEDICATION DILUTION
     Dates: start: 20080319, end: 20080319
  12. DIAMOX [Concomitant]
     Dates: start: 20080319, end: 20080319
  13. MAXITROL EYE DROPS [Concomitant]
     Route: 047
     Dates: start: 20080319
  14. ASPIRIN [Concomitant]
     Route: 048
  15. ATENOLOL [Concomitant]
     Route: 048
  16. SIMVASTATIN [Concomitant]
     Route: 048
  17. GLICLAZIDE [Concomitant]
     Route: 048
  18. RAMIPRIL [Concomitant]
     Route: 048
  19. METFORMIN [Concomitant]
     Route: 048

REACTIONS (2)
  - RETINOGRAM ABNORMAL [None]
  - VISUAL ACUITY REDUCED [None]
